FAERS Safety Report 6669126-6 (Version None)
Quarter: 2010Q2

REPORT INFORMATION
  Report Type: 
  Country: None (occurrence: None)
  Receive Date: 20100402
  Receipt Date: 20100325
  Transmission Date: 20101027
  Serious: Yes (Life-Threatening, Hospitalization)
  Sender: FDA-Public Use
  Company Number: SPV1-2010-00371

PATIENT
  Age: 49 Year
  Sex: Male

DRUGS (4)
  1. FOSRENOL [Suspect]
     Indication: HYPERPHOSPHATAEMIA
     Dosage: ORAL
     Route: 048
     Dates: start: 20100208, end: 20100222
  2. MEROPENEM [Suspect]
     Dosage: INTRAVENOUS
     Route: 042
     Dates: start: 20100129, end: 20100219
  3. VANCOMYCIN [Concomitant]
  4. PAXIL [Concomitant]

REACTIONS (5)
  - DERMATITIS ALLERGIC [None]
  - EOSINOPHIL COUNT INCREASED [None]
  - GRANULOCYTE COUNT DECREASED [None]
  - URTICARIA [None]
  - WHITE BLOOD CELL COUNT DECREASED [None]
